FAERS Safety Report 4916993-X (Version None)
Quarter: 2006Q1

REPORT INFORMATION
  Report Type: 
  Country: None (occurrence: None)
  Receive Date: 20060214
  Receipt Date: 20060131
  Transmission Date: 20060701
  Serious: Yes (Other)
  Sender: FDA-Public Use
  Company Number: DE200602000873

PATIENT
  Sex: Male

DRUGS (3)
  1. YENTREVE(DULOXETINE HYDROCHLORIDE) CAPSULE [Suspect]
     Indication: STRESS INCONTINENCE
     Dosage: 40 MG, 2/D, ORAL
     Route: 048
     Dates: start: 20050920
  2. CIALIS ^LILLY^ (TADALAFIL) [Concomitant]
  3. CORDANUM (TALINOLOL) [Concomitant]

REACTIONS (4)
  - ELECTROCARDIOGRAM QT PROLONGED [None]
  - MUSCLE TWITCHING [None]
  - SLEEP DISORDER [None]
  - TREMOR [None]
